FAERS Safety Report 11444395 (Version 2)
Quarter: 2015Q4

REPORT INFORMATION
  Report Type: Report from Study
  Country: KR (occurrence: KR)
  Receive Date: 20150902
  Receipt Date: 20151118
  Transmission Date: 20160304
  Serious: No
  Sender: FDA-Public Use
  Company Number: KR-AMGEN-KORNI2015089721

PATIENT
  Age: 60 Year
  Sex: Male
  Weight: 79 kg

DRUGS (11)
  1. IVABRADINE [Suspect]
     Active Substance: IVABRADINE
     Dosage: 15 MG, QD
     Route: 048
     Dates: start: 20150223, end: 20150608
  2. LASIX [Concomitant]
     Active Substance: FUROSEMIDE
     Dosage: UNK, DAILY
     Dates: start: 20140407
  3. CLOGREL [Concomitant]
     Dosage: UNK, DAILY
     Dates: start: 20140407
  4. DIAMICRON [Concomitant]
     Active Substance: GLICLAZIDE
     Dosage: UNK, DAILY
     Dates: start: 20140407
  5. SIGMART [Concomitant]
     Active Substance: NICORANDIL
     Dosage: UNK, DAILY
     Dates: start: 20140407
  6. ISOTRIL [Concomitant]
     Dosage: UNK, DAILY
     Dates: start: 20140407
  7. IVABRADINE [Suspect]
     Active Substance: IVABRADINE
     Indication: CARDIAC FAILURE CONGESTIVE
     Dosage: 10 MG, QD
     Route: 048
     Dates: start: 20150105, end: 20150222
  8. CRESTOR [Concomitant]
     Active Substance: ROSUVASTATIN CALCIUM
     Dosage: UNK, DAILY
     Dates: start: 20140407
  9. TRADJENTA [Concomitant]
     Active Substance: LINAGLIPTIN
     Dosage: UNK, DAILY
     Dates: start: 20140407
  10. ORODIPINE [Concomitant]
     Dosage: UNK, DAILY
     Dates: start: 20140407
  11. DILATREND [Concomitant]
     Active Substance: CARVEDILOL
     Dosage: UNKNOWN DAILY DOSE
     Dates: start: 20141110

REACTIONS (1)
  - Blood creatinine increased [Not Recovered/Not Resolved]

NARRATIVE: CASE EVENT DATE: 20150608
